FAERS Safety Report 5094201-X (Version None)
Quarter: 2006Q3

REPORT INFORMATION
  Report Type: 
  Country: None (occurrence: None)
  Receive Date: 20060831
  Receipt Date: 20060419
  Transmission Date: 20061208
  Serious: Yes (Death, Other)
  Sender: FDA-Public Use
  Company Number: PHBS2006JP05786

PATIENT
  Age: 58 Year
  Sex: Male
  Weight: 56 kg

DRUGS (6)
  1. METHYLPREDNISOLONE [Concomitant]
     Indication: CRYPTOGENIC ORGANISING PNEUMONIA
     Dosage: 500 MG/D
     Dates: start: 20030801
  2. BETAMETHASONE [Concomitant]
     Indication: CRYPTOGENIC ORGANISING PNEUMONIA
  3. NEORAL [Suspect]
     Indication: MYELODYSPLASTIC SYNDROME
     Route: 065
     Dates: start: 20031027, end: 20031118
  4. PREDNISOLONE [Concomitant]
     Dosage: 30 MG/D
  5. STEROIDS NOS [Concomitant]
     Dates: start: 20031019
  6. MICAFUNGIN [Suspect]

REACTIONS (12)
  - BLOOD BETA-D-GLUCAN INCREASED [None]
  - BRONCHOPULMONARY ASPERGILLOSIS [None]
  - CONCOMITANT DISEASE PROGRESSION [None]
  - CRYPTOGENIC ORGANISING PNEUMONIA [None]
  - CYTOMEGALOVIRUS CHORIORETINITIS [None]
  - DISEASE PROGRESSION [None]
  - DISSEMINATED INTRAVASCULAR COAGULATION [None]
  - LEUKAEMOID REACTION [None]
  - LUNG INFECTION [None]
  - PLATELET COUNT DECREASED [None]
  - PYREXIA [None]
  - WHITE BLOOD CELL COUNT INCREASED [None]
